FAERS Safety Report 9010198 (Version 1)
Quarter: 2013Q1

REPORT INFORMATION
  Report Type: Spontaneous
  Country: US (occurrence: US)
  Receive Date: 20130110
  Receipt Date: 20130110
  Transmission Date: 20140127
  Serious: Yes (Hospitalization)
  Sender: FDA-Public Use
  Company Number: US-BAYER-2013-002321

PATIENT
  Age: 32 Year
  Sex: Female
  Weight: 83.45 kg

DRUGS (12)
  1. YAZ [Suspect]
     Dosage: UNK
  2. YASMIN [Suspect]
  3. OCELLA [Suspect]
  4. MOTRIN [Concomitant]
     Indication: MUSCLE SPASMS
     Dosage: 800 MG, UNK
     Route: 048
  5. MORPHINE [Concomitant]
  6. DILAUDID [Concomitant]
  7. AVELOX [Concomitant]
  8. PHENERGAN [Concomitant]
  9. LAMICTAL [Concomitant]
     Indication: BIPOLAR DISORDER
     Dosage: 25 MG, QD
  10. CHLORZOXAZONE [Concomitant]
     Dosage: 500 MG, UNK
     Route: 048
  11. IMITREX [Concomitant]
     Dosage: 800 MG, UNK
     Route: 048
  12. PROPOXYPHENE NAPSYLATE W/ACETAMINOPHENE [Concomitant]
     Dosage: 650 DF, UNK
     Route: 048

REACTIONS (1)
  - Pulmonary embolism [None]
